FAERS Safety Report 6310539-X (Version None)
Quarter: 2009Q3

REPORT INFORMATION
  Report Type: 
  Country: None (occurrence: None)
  Receive Date: 20090814
  Receipt Date: 20090806
  Transmission Date: 20100115
  Serious: Yes (Other)
  Sender: FDA-Public Use
  Company Number: CA-CELGENEUS-028-20785-08060962

PATIENT
  Sex: Female

DRUGS (6)
  1. THALOMID [Suspect]
     Route: 048
     Dates: start: 20080101, end: 20081201
  2. THALOMID [Suspect]
     Route: 048
     Dates: start: 20071201, end: 20071201
  3. THALOMID [Suspect]
     Route: 048
     Dates: start: 20081201, end: 20090201
  4. THALOMID [Suspect]
     Route: 048
     Dates: start: 20090201
  5. DECADRON [Concomitant]
     Indication: DRUG USE FOR UNKNOWN INDICATION
     Route: 065
  6. SYNTHROID [Concomitant]
     Indication: DRUG USE FOR UNKNOWN INDICATION
     Route: 065

REACTIONS (1)
  - BLOOD HUMAN CHORIONIC GONADOTROPIN ABNORMAL [None]
